FAERS Safety Report 4901779-2 (Version None)
Quarter: 2006Q1

REPORT INFORMATION
  Report Type: 
  Country: None (occurrence: None)
  Receive Date: 20060203
  Receipt Date: 20060203
  Transmission Date: 20060701
  Serious: Yes (Life-Threatening)
  Sender: FDA-Public Use
  Company Number: None

PATIENT
  Sex: Female
  Weight: 79.3795 kg

DRUGS (1)
  1. ELIDEL [Suspect]
     Indication: LIP DISORDER
     Dosage: SMALL AMOUNT ON LIPS   TWICE DAILY  PO
     Route: 048
     Dates: start: 20031201, end: 20040501

REACTIONS (1)
  - ENDOMETRIAL CANCER [None]
